FAERS Safety Report 4967373-2 (Version None)
Quarter: 2006Q2

REPORT INFORMATION
  Report Type: 
  Country: None (occurrence: None)
  Receive Date: 20060404
  Receipt Date: 20060320
  Transmission Date: 20061013
  Serious: Yes (Life-Threatening, Hospitalization)
  Sender: FDA-Public Use
  Company Number: GXKR2005GB01741

PATIENT
  Age: 43 Year
  Sex: Male

DRUGS (8)
  1. AMLODIPINE [Suspect]
     Indication: INCORRECT DOSE ADMINISTERED
     Dosage: 560 MG, ONCE/SINGLE, ORAL
     Route: 048
  2. CITALOPRAM [Suspect]
     Indication: INCORRECT DOSE ADMINISTERED
     Dosage: 280  MG
  3. FLUOXETINE [Suspect]
     Indication: INCORRECT DOSE ADMINISTERED
     Dosage: 600 MG
  4. ASPIRIN [Suspect]
     Indication: INCORRECT DOSE ADMINISTERED
     Dosage: 7.5 G
  5. PERINDOPRIL [Suspect]
     Indication: INCORRECT DOSE ADMINISTERED
     Dosage: 120 MG
  6. FOLIC ACID [Suspect]
     Indication: INCORRECT DOSE ADMINISTERED
     Dosage: 30 TABLETS, ORAL
     Route: 048
  7. PARACETAMOL [Suspect]
     Indication: INCORRECT DOSE ADMINISTERED
     Dosage: 16 G
  8. ALCOHOL(ETHANOL) [Suspect]

REACTIONS (13)
  - ANURIA [None]
  - BLOOD POTASSIUM DECREASED [None]
  - CARDIOTOXICITY [None]
  - CIRCULATORY COLLAPSE [None]
  - DEPRESSED LEVEL OF CONSCIOUSNESS [None]
  - GENERAL PHYSICAL HEALTH DETERIORATION [None]
  - GLASGOW COMA SCALE ABNORMAL [None]
  - HAEMODYNAMIC INSTABILITY [None]
  - HEART RATE DECREASED [None]
  - HYPOTENSION [None]
  - METABOLIC ACIDOSIS [None]
  - MULTIPLE DRUG OVERDOSE INTENTIONAL [None]
  - RENAL FAILURE ACUTE [None]
